FAERS Safety Report 9461726 (Version 4)
Quarter: 2013Q4

REPORT INFORMATION
  Report Type: Report from Study
  Country: CA (occurrence: CA)
  Receive Date: 20130816
  Receipt Date: 20131112
  Transmission Date: 20140711
  Serious: Yes (Other)
  Sender: FDA-Public Use
  Company Number: CA-ASTELLAS-2013US008502

PATIENT
  Age: 80 Year
  Sex: Male
  Weight: 54 kg

DRUGS (18)
  1. ENZALUTAMIDE [Suspect]
     Indication: PROSTATE CANCER
     Dosage: 160 MG, UID/QD
     Route: 048
     Dates: start: 20130314, end: 20130703
  2. DIMENHYDRINATE [Concomitant]
     Indication: NAUSEA
     Dosage: 50 MG, PRN, QD
     Route: 048
     Dates: start: 201302
  3. UNIPHYL [Concomitant]
     Indication: CHRONIC OBSTRUCTIVE PULMONARY DISEASE
     Dosage: 400 MG, UID/QD
     Route: 048
     Dates: start: 2007
  4. GLYBURIDE [Concomitant]
     Indication: DIABETES MELLITUS
     Dosage: 10 MG, UID/QD
     Route: 048
     Dates: start: 20120606
  5. LISINOPRIL [Concomitant]
     Indication: HYPERTENSION
     Dosage: 5 MG, UID/QD
     Route: 048
     Dates: start: 2000
  6. LESCOL [Concomitant]
     Indication: HYPERCHOLESTEROLAEMIA
     Dosage: 20 MG, UID/QD
     Route: 048
     Dates: start: 1992
  7. PANTOPRAZOLE [Concomitant]
     Indication: DYSPEPSIA
     Dosage: 40 MG, UID/QD
     Route: 048
     Dates: start: 20120719
  8. DOCUSATE SODIUM [Concomitant]
     Indication: CONSTIPATION
     Dosage: 400 MG, UID/QD
     Route: 048
     Dates: start: 20121129
  9. SPIRIVA [Concomitant]
     Indication: CHRONIC OBSTRUCTIVE PULMONARY DISEASE
     Dosage: 18 UG, UID/QD
     Route: 055
     Dates: start: 2007
  10. JANUMET [Concomitant]
     Indication: DIABETES MELLITUS
     Dosage: 50/1000 MG
     Route: 048
     Dates: start: 201208
  11. SALVENT                            /00139501/ [Concomitant]
     Indication: CHRONIC OBSTRUCTIVE PULMONARY DISEASE
     Dosage: 400 UG, UID/QD
     Route: 055
     Dates: start: 2007
  12. EURO-SENNA [Concomitant]
     Indication: CONSTIPATION
     Dosage: 28 MG, UID/QD
     Route: 048
     Dates: start: 20121129
  13. ADVAIR [Concomitant]
     Indication: CHRONIC OBSTRUCTIVE PULMONARY DISEASE
     Dosage: 100 UG, UID/QD
     Route: 055
     Dates: start: 2007
  14. PROCHLORPERAZINE [Concomitant]
     Indication: NAUSEA
     Dosage: 15 MG, UID/QD
     Route: 048
     Dates: start: 201302
  15. CELECOXIB [Concomitant]
     Indication: CANCER PAIN
     Dosage: 100 MG, UID/QD
     Route: 048
     Dates: start: 20130314
  16. ACETAMINOPHEN [Concomitant]
     Indication: CANCER PAIN
     Dosage: PRN
     Route: 048
     Dates: start: 2000
  17. CALCIUM [Concomitant]
     Indication: SUPPLEMENTATION THERAPY
     Dosage: 1000 MG, UID/QD
     Route: 048
     Dates: start: 20130103
  18. VITAMIN D                          /00107901/ [Concomitant]
     Indication: SUPPLEMENTATION THERAPY
     Dosage: 10000 U, WEEKLY
     Route: 048
     Dates: start: 20130103

REACTIONS (2)
  - Sinus tachycardia [Recovered/Resolved]
  - Extrasystoles [Recovered/Resolved]
